FAERS Safety Report 17432548 (Version 2)
Quarter: 2020Q2

REPORT INFORMATION
  Report Type: Report from Study
  Country: None (occurrence: US)
  Receive Date: 20200218
  Receipt Date: 20200511
  Transmission Date: 20200713
  Serious: Yes (Other)
  Sender: FDA-Public Use
  Company Number: US-ABBVIE-20K-163-3277309-00

PATIENT
  Age: 63 Year
  Sex: Female
  Weight: 97.61 kg

DRUGS (15)
  1. HUMIRA [Suspect]
     Active Substance: ADALIMUMAB
     Indication: CROHN^S DISEASE
     Route: 058
     Dates: start: 20180816, end: 20200214
  2. SIMVASTATIN. [Concomitant]
     Active Substance: SIMVASTATIN
     Indication: BLOOD CHOLESTEROL INCREASED
  3. METHOCARBAMOL. [Concomitant]
     Active Substance: METHOCARBAMOL
     Indication: ARTHRITIS
  4. SUCRALFATE. [Concomitant]
     Active Substance: SUCRALFATE
     Indication: NAUSEA
  5. PANTOPRAZOLE [Concomitant]
     Active Substance: PANTOPRAZOLE
     Indication: GASTROOESOPHAGEAL REFLUX DISEASE
  6. IBUPROFEN. [Concomitant]
     Active Substance: IBUPROFEN
     Indication: ARTHRITIS
  7. PROMETHAZINE [Concomitant]
     Active Substance: PROMETHAZINE HYDROCHLORIDE
     Indication: NAUSEA
  8. HYDROTHIAZIDE [Concomitant]
     Indication: DIURETIC THERAPY
  9. LISINOPRIL. [Concomitant]
     Active Substance: LISINOPRIL
     Indication: HYPERTENSION
  10. METHOCARBAMOL. [Concomitant]
     Active Substance: METHOCARBAMOL
     Indication: FIBROMYALGIA
  11. IBUPROFEN. [Concomitant]
     Active Substance: IBUPROFEN
     Indication: FIBROMYALGIA
  12. VITAMIN D [Concomitant]
     Active Substance: VITAMIN D NOS
     Indication: PRODUCT USED FOR UNKNOWN INDICATION
  13. HYDROCODONE [Concomitant]
     Active Substance: HYDROCODONE
     Indication: PAIN
  14. CALCIUM [Concomitant]
     Active Substance: CALCIUM
     Indication: PRODUCT USED FOR UNKNOWN INDICATION
  15. METHADONE [Concomitant]
     Active Substance: METHADONE HYDROCHLORIDE
     Indication: PAIN

REACTIONS (22)
  - Compression fracture [Unknown]
  - Appendicectomy [Unknown]
  - Colectomy total [Unknown]
  - Neck injury [Unknown]
  - Adenoidectomy [Unknown]
  - Road traffic accident [Unknown]
  - Spinal laminectomy [Unknown]
  - Urinary bladder suspension [Unknown]
  - Colostomy [Unknown]
  - Ileostomy [Unknown]
  - Spinal cord injury [Unknown]
  - Fistula [Unknown]
  - Intervertebral disc protrusion [Unknown]
  - Wisdom teeth removal [Unknown]
  - Abdominal hernia [Unknown]
  - Infection [Unknown]
  - Stomal hernia [Unknown]
  - Intervertebral disc operation [Unknown]
  - Tonsillectomy [Unknown]
  - Inguinal hernia [Unknown]
  - Gallbladder operation [Unknown]
  - Hysterectomy [Unknown]

NARRATIVE: CASE EVENT DATE: 20191202
